FAERS Safety Report 8611603-2 (Version None)
Quarter: 2012Q3

REPORT INFORMATION
  Report Type: 
  Country: None (occurrence: None)
  Receive Date: 20120822
  Receipt Date: 20120817
  Transmission Date: 20120928
  Serious: Yes (Other)
  Sender: FDA-Public Use
  Company Number: IE-PFIZER INC-2012203503

PATIENT
  Age: 70 Year
  Sex: Male

DRUGS (1)
  1. SIROLIMUS [Suspect]
     Indication: RENAL IMPAIRMENT
     Dosage: 2 MG, DAILY
     Route: 048

REACTIONS (2)
  - PNEUMONITIS [None]
  - RESPIRATORY FAILURE [None]
